FAERS Safety Report 9060033 (Version 1)
Quarter: 2013Q1

REPORT INFORMATION
  Report Type: Spontaneous
  Country: US (occurrence: None)
  Receive Date: 20130207
  Receipt Date: 20130207
  Transmission Date: 20140127
  Serious: Yes (Other)
  Sender: FDA-Public Use
  Company Number: None

PATIENT
  Age: 71 Year
  Sex: Male
  Weight: 86.18 kg

DRUGS (1)
  1. CIALIS 20 MG [Suspect]
     Indication: ERECTILE DYSFUNCTION
     Dosage: ONE 20MG PILL WHEN NEEDED
     Route: 048
     Dates: start: 20121214

REACTIONS (3)
  - Abdominal discomfort [None]
  - Drug ineffective [None]
  - Product formulation issue [None]
